FAERS Safety Report 8143861-5 (Version None)
Quarter: 2012Q1

REPORT INFORMATION
  Report Type: 
  Country: None (occurrence: None)
  Receive Date: 20120217
  Receipt Date: 20120214
  Transmission Date: 20120608
  Serious: No
  Sender: FDA-Public Use
  Company Number: VE-PFIZER INC-2012034592

PATIENT
  Age: 64 Year
  Sex: Female

DRUGS (2)
  1. COZAAR [Concomitant]
     Indication: CARDIAC MURMUR
     Dosage: 50 MG, ONCE DAILY
     Route: 048
     Dates: start: 20100101
  2. CADUET [Suspect]
     Indication: HYPERTENSION
     Dosage: [AMLODIPINE BESILATE 5 MG]/ [ATORVASTATIN CALCIUM 20 MG], ONCE DAILY
     Route: 048
     Dates: start: 20110101

REACTIONS (1)
  - ARTHRALGIA [None]
